FAERS Safety Report 12277208 (Version 1)
Quarter: 2016Q2

REPORT INFORMATION
  Report Type: Spontaneous
  Country: US (occurrence: None)
  Receive Date: 20160415
  Receipt Date: 20160415
  Transmission Date: 20160815
  Serious: Yes (Other)
  Sender: FDA-Public Use
  Company Number: None

PATIENT
  Age: 51 Year
  Sex: Female
  Weight: 55.79 kg

DRUGS (21)
  1. METHOCARBAM [Concomitant]
  2. VEGAN VITAMIN C [Concomitant]
  3. HERBS [Concomitant]
     Active Substance: HERBALS
  4. DENTURE PASTES [Concomitant]
  5. VERIMAPIL [Concomitant]
  6. EPIPEN [Concomitant]
     Active Substance: EPINEPHRINE
  7. ACIDOPHILUS PROBIOTIC [Concomitant]
  8. VEGAN TAURINE [Concomitant]
  9. VEGAN BIOTIN [Concomitant]
  10. MAXALT [Concomitant]
     Active Substance: RIZATRIPTAN BENZOATE
  11. FLUTICASONE PROPIONATE. [Concomitant]
     Active Substance: FLUTICASONE PROPIONATE
  12. ASPIRIN. [Concomitant]
     Active Substance: ASPIRIN
  13. EQUATE ALLERGY MOUTHWASH [Concomitant]
  14. BUPROPION EXTENDED RELEASE, 300MG [Suspect]
     Active Substance: BUPROPION
     Indication: MAJOR DEPRESSION
     Dosage: 1 TABLET(S) AT BEDTIME TAKEN BY MOUTH
     Route: 048
     Dates: start: 20140301, end: 20160301
  15. BACLOFEN. [Concomitant]
     Active Substance: BACLOFEN
  16. VEGAN VITAMIN DE/CALCIUMBORON/K 1 AND K2 [Concomitant]
  17. VEGAN L-CARNITINE [Concomitant]
  18. VEGAN BAMBOO [Concomitant]
  19. VEGAN LECITHIN [Concomitant]
  20. GARCINIA CAMBOGIA [Concomitant]
     Active Substance: HYDROXYCITRIC ACID
  21. VEGAN MULTIVITAMINS [Concomitant]

REACTIONS (10)
  - Abdominal pain [None]
  - Nausea [None]
  - Hyperhidrosis [None]
  - Diarrhoea [None]
  - Vulvovaginal pruritus [None]
  - Alopecia [None]
  - Headache [None]
  - Dysgeusia [None]
  - Vision blurred [None]
  - Urinary tract infection [None]

NARRATIVE: CASE EVENT DATE: 20140301
